FAERS Safety Report 6417290-6 (Version None)
Quarter: 2009Q4

REPORT INFORMATION
  Report Type: 
  Country: None (occurrence: None)
  Receive Date: 20091028
  Receipt Date: 20091015
  Transmission Date: 20100525
  Serious: Yes (Other)
  Sender: FDA-Public Use
  Company Number: PHHY2009IE44961

PATIENT
  Age: 62 Year
  Sex: Female

DRUGS (7)
  1. ZOMETA [Suspect]
     Dosage: 4 MG, QMO
     Route: 042
  2. KAY CIEL DURA-TABS [Suspect]
     Dosage: 15 ML, TID
     Route: 048
     Dates: start: 20090912, end: 20090915
  3. MORPHINE [Concomitant]
  4. CYCLIZINE [Concomitant]
  5. ALPRAZOLAM [Concomitant]
  6. FLUCONAZOLE [Concomitant]
  7. TEMAZEPAM [Concomitant]

REACTIONS (3)
  - HAEMATEMESIS [None]
  - MELAENA [None]
  - OESOPHAGEAL ULCER [None]
